FAERS Safety Report 18321023 (Version 1)
Quarter: 2020Q3

REPORT INFORMATION
  Report Type: Spontaneous
  Country: US (occurrence: US)
  Receive Date: 20200929
  Receipt Date: 20200929
  Transmission Date: 20201103
  Serious: No
  Sender: FDA-Public Use
  Company Number: US-BION-008736

PATIENT
  Age: 90 Year

DRUGS (1)
  1. IMODIUM A?D [Suspect]
     Active Substance: LOPERAMIDE HYDROCHLORIDE
     Indication: DIARRHOEA
     Dosage: START DATE: 2 YEARS AGO

REACTIONS (4)
  - Incorrect dose administered [Not Recovered/Not Resolved]
  - Product packaging difficult to open [Unknown]
  - Product storage error [Not Recovered/Not Resolved]
  - Incorrect product administration duration [Not Recovered/Not Resolved]
